FAERS Safety Report 9659884 (Version 1)
Quarter: 2013Q4

REPORT INFORMATION
  Report Type: Spontaneous
  Country: MY (occurrence: MY)
  Receive Date: 20131031
  Receipt Date: 20131031
  Transmission Date: 20140711
  Serious: Yes (Hospitalization)
  Sender: FDA-Public Use
  Company Number: MY-MYLANLABS-2013S1023795

PATIENT
  Age: 28 Year
  Sex: Male

DRUGS (2)
  1. OLANZAPINE [Suspect]
     Indication: BIPOLAR I DISORDER
     Dosage: AT NIGHT
     Route: 065
     Dates: start: 2007
  2. SODIUM VALPROATE [Suspect]
     Indication: BIPOLAR I DISORDER
     Dosage: 500MG DAILY
     Route: 065
     Dates: start: 2007

REACTIONS (2)
  - Neuroleptic malignant syndrome [Unknown]
  - Inappropriate antidiuretic hormone secretion [Unknown]
